FAERS Safety Report 9485723 (Version 2)
Quarter: 2013Q3

REPORT INFORMATION
  Report Type: Report from Study
  Country: US (occurrence: US)
  Receive Date: 20130829
  Receipt Date: 20130829
  Transmission Date: 20140515
  Serious: Yes (Death, Other)
  Sender: FDA-Public Use
  Company Number: US-ROCHE-729256

PATIENT
  Sex: Female

DRUGS (8)
  1. BEVACIZUMAB [Suspect]
     Indication: GENITAL NEOPLASM MALIGNANT FEMALE
     Dosage: EVERY 2 WEEKS
     Route: 042
  2. BEVACIZUMAB [Suspect]
     Dosage: EVERY 2 WEEKS
     Route: 042
  3. BEVACIZUMAB [Suspect]
     Dosage: EVERY 2 WEEKS
     Route: 042
  4. ENZASTAURIN [Suspect]
     Indication: GENITAL NEOPLASM MALIGNANT FEMALE
     Dosage: DAILY,  DOSE ESCALATED
     Route: 048
  5. ENZASTAURIN [Suspect]
     Dosage: DOSE ESCALATED
     Route: 048
  6. ENZASTAURIN [Suspect]
     Dosage: DOSE ESCALATED
     Route: 048
  7. ENZASTAURIN [Suspect]
     Dosage: DOSE ESCALATED
     Route: 048
  8. ENZASTAURIN [Suspect]
     Dosage: DOSE ESCALATED
     Route: 048

REACTIONS (26)
  - Cerebral haemorrhage [Fatal]
  - Deep vein thrombosis [Unknown]
  - Small intestinal obstruction [Unknown]
  - Female genital tract fistula [Unknown]
  - Intestinal perforation [Unknown]
  - Impaired healing [Unknown]
  - Myocardial ischaemia [Unknown]
  - Alanine aminotransferase increased [Unknown]
  - Haemorrhage [Unknown]
  - Fatigue [Unknown]
  - Aspartate aminotransferase increased [Unknown]
  - Platelet disorder [Unknown]
  - Decreased appetite [Unknown]
  - Asthenia [Unknown]
  - Urogenital fistula [Unknown]
  - Infection [Unknown]
  - Pain [Unknown]
  - Pancreatitis [Unknown]
  - Electrocardiogram QT prolonged [Unknown]
  - Exfoliative rash [Unknown]
  - Somnolence [Unknown]
  - Thrombosis [Unknown]
  - Vomiting [Unknown]
  - Failure to thrive [Unknown]
  - Pulmonary embolism [Unknown]
  - Myocardial infarction [Unknown]
